FAERS Safety Report 7771572-4 (Version None)
Quarter: 2011Q3

REPORT INFORMATION
  Report Type: 
  Country: None (occurrence: None)
  Receive Date: 20110922
  Receipt Date: 20110111
  Transmission Date: 20111222
  Serious: No
  Sender: FDA-Public Use
  Company Number: US-ASTRAZENECA-2011SE02048

PATIENT
  Age: 47 Year
  Sex: Female
  Weight: 89.8 kg

DRUGS (7)
  1. MORPHINE [Concomitant]
     Indication: BACK PAIN
  2. SEROQUEL [Suspect]
     Indication: DEPRESSION
     Dosage: SHE CUTS A 400MG TABLET IN HALF FOR A MORNING DOSE OF 200MG AND TAKES ONE 400MG TABLET AT NIGHT
     Route: 048
     Dates: start: 20080101
  3. SEROQUEL [Suspect]
     Indication: ANXIETY
     Dosage: SHE CUTS A 400MG TABLET IN HALF FOR A MORNING DOSE OF 200MG AND TAKES ONE 400MG TABLET AT NIGHT
     Route: 048
     Dates: start: 20080101
  4. SEROQUEL [Suspect]
     Indication: BIPOLAR DISORDER
     Dosage: SHE CUTS A 400MG TABLET IN HALF FOR A MORNING DOSE OF 200MG AND TAKES ONE 400MG TABLET AT NIGHT
     Route: 048
     Dates: start: 20080101
  5. LEVOTHYROXINE SODIUM [Concomitant]
     Indication: THYROID DISORDER
  6. MIRTAZAPINE [Concomitant]
     Indication: DEPRESSION
  7. ZOLPITEM [Concomitant]
     Indication: SLEEP DISORDER

REACTIONS (3)
  - NASOPHARYNGITIS [None]
  - INTERVERTEBRAL DISC OPERATION [None]
  - WRONG TECHNIQUE IN DRUG USAGE PROCESS [None]
